FAERS Safety Report 7303880-5 (Version None)
Quarter: 2011Q1

REPORT INFORMATION
  Report Type: 
  Country: None (occurrence: None)
  Receive Date: 20110221
  Receipt Date: 20110211
  Transmission Date: 20110831
  Serious: Yes (Hospitalization)
  Sender: FDA-Public Use
  Company Number: B0699416A

PATIENT
  Sex: Male

DRUGS (15)
  1. UROMITEXAN [Suspect]
     Route: 042
     Dates: start: 20101112, end: 20110104
  2. NEXIUM [Concomitant]
     Route: 065
  3. ZOPHREN [Suspect]
     Route: 042
     Dates: start: 20101112
  4. BACTRIM [Concomitant]
     Route: 065
  5. CORTANCYL [Concomitant]
     Route: 065
  6. PHENERGAN [Suspect]
     Dosage: 2INJ CUMULATIVE DOSE
     Route: 042
     Dates: start: 20101228, end: 20110105
  7. ZELITREX [Concomitant]
     Route: 065
  8. PIPERACILLIN AND TAZOBACTAM [Suspect]
     Dosage: 4G FOUR TIMES PER DAY
     Route: 042
     Dates: start: 20110106
  9. CARDENSIEL [Concomitant]
     Route: 065
  10. METHYLPREDNISOLONE [Suspect]
     Route: 042
     Dates: start: 20101228
  11. TERBUTALINE [Concomitant]
     Route: 065
  12. MABTHERA [Suspect]
     Route: 042
     Dates: start: 20101228, end: 20110105
  13. ENDOXAN [Suspect]
     Route: 042
     Dates: start: 20101112, end: 20110104
  14. ATACAND [Concomitant]
     Route: 065
  15. TUXIUM [Concomitant]
     Route: 065

REACTIONS (1)
  - AGRANULOCYTOSIS [None]
